FAERS Safety Report 9060913 (Version 1)
Quarter: 2013Q1

REPORT INFORMATION
  Report Type: Spontaneous
  Country: GB (occurrence: GB)
  Receive Date: 20130212
  Receipt Date: 20130212
  Transmission Date: 20140127
  Serious: Yes (Life-Threatening, Hospitalization)
  Sender: FDA-Public Use
  Company Number: GB-RANBAXY-2013R1-65125

PATIENT
  Age: 73 Year
  Sex: Male
  Weight: 90 kg

DRUGS (7)
  1. NAPROXEN [Suspect]
     Indication: POSTOPERATIVE CARE
     Dosage: 500 MG, BID
     Route: 048
     Dates: start: 20130109, end: 20130111
  2. PRADAXA [Suspect]
     Indication: POSTOPERATIVE CARE
     Dosage: UNK
     Route: 048
     Dates: start: 20130109, end: 20130110
  3. ASPIRIN [Concomitant]
     Indication: PRODUCT USED FOR UNKNOWN INDICATION
     Dosage: 75 MG, QD
     Route: 048
  4. FLUOXETINE [Concomitant]
     Indication: DEPRESSION
     Dosage: 20 MG, BID
     Route: 048
  5. LIGNOCAINE [Concomitant]
     Indication: PRODUCT USED FOR UNKNOWN INDICATION
     Dosage: 1 DF, QD
     Route: 061
  6. PARACETAMOL [Concomitant]
     Indication: POSTOPERATIVE ANALGESIA
     Dosage: 1 G, QID
     Route: 048
     Dates: start: 20130109, end: 20130111
  7. RANITIDINE [Concomitant]
     Indication: PRODUCT USED FOR UNKNOWN INDICATION
     Dosage: 150 MG, BID
     Route: 048

REACTIONS (2)
  - Renal failure acute [Unknown]
  - Upper gastrointestinal haemorrhage [Recovering/Resolving]
